FAERS Safety Report 9648953 (Version 3)
Quarter: 2014Q4

REPORT INFORMATION
  Report Type: Spontaneous
  Country: US (occurrence: None)
  Receive Date: 20131018
  Receipt Date: 20141020
  Transmission Date: 20150529
  Serious: No
  Sender: FDA-Public Use
  Company Number: AEGR000128

PATIENT
  Age: 72 Year
  Sex: Female
  Weight: 88.4 kg

DRUGS (12)
  1. PITAVASTATIN (PITAVASTATIN) [Concomitant]
  2. CLOPIDOGREL [Concomitant]
     Active Substance: CLOPIDOGREL BISULFATE
  3. MICARDIS [Concomitant]
     Active Substance: TELMISARTAN
  4. OMEGA 3-6-9 (FISH OIL, TOCOPHEROL) [Concomitant]
  5. LIVALO (PITAVASTATIN CALCIUM) [Concomitant]
  6. E 400 (TOCOPHERYL ACETATE) [Concomitant]
  7. METOPROLOL (METOPROLOL TARTRATE) [Concomitant]
     Active Substance: METOPROLOL TARTRATE
  8. VITAMIN D (COLECALCIFEROL) [Concomitant]
  9. PLAVIX (COLECALCIFEROL) [Concomitant]
  10. JUXTAPID [Suspect]
     Active Substance: LOMITAPIDE MESYLATE
     Indication: TYPE IIA HYPERLIPIDAEMIA
     Dosage: UNK, ORAL
     Dates: start: 20130325, end: 20130613
  11. ASPIRIN (ACETYLSALICYLIC ACID) [Concomitant]
     Active Substance: ASPIRIN
  12. FISH OIL (FISH OIL) [Concomitant]
     Active Substance: FISH OIL

REACTIONS (5)
  - Weight decreased [None]
  - Decreased appetite [None]
  - Nausea [None]
  - Alcohol interaction [None]
  - Somnolence [None]

NARRATIVE: CASE EVENT DATE: 2013
